FAERS Safety Report 8125361-1 (Version None)
Quarter: 2012Q1

REPORT INFORMATION
  Report Type: 
  Country: None (occurrence: None)
  Receive Date: 20120209
  Receipt Date: 20111123
  Transmission Date: 20120608
  Serious: Yes (Hospitalization)
  Sender: FDA-Public Use
  Company Number: JP-GLAXOSMITHKLINE-B0765415A

PATIENT
  Sex: Female
  Weight: 60 kg

DRUGS (3)
  1. LAMICTAL [Suspect]
     Indication: PETIT MAL EPILEPSY
     Dosage: 25MG PER DAY
     Route: 048
     Dates: start: 20110531, end: 20110608
  2. VALPROATE SODIUM [Concomitant]
     Indication: PETIT MAL EPILEPSY
     Dosage: 400MG PER DAY
     Route: 048
  3. CLONAZEPAM [Concomitant]
     Indication: PETIT MAL EPILEPSY
     Dosage: 1.5MG PER DAY
     Route: 048

REACTIONS (1)
  - VIRAL RASH [None]
